FAERS Safety Report 5206792-6 (Version None)
Quarter: 2006Q4

REPORT INFORMATION
  Report Type: 
  Country: None (occurrence: None)
  Receive Date: 20061026
  Receipt Date: 20060906
  Transmission Date: 20070319
  Serious: No
  Sender: FDA-Public Use
  Company Number: 2006109210

PATIENT
  Age: 55 Year
  Sex: Female
  Weight: 136.0791 kg

DRUGS (8)
  1. LYRICA [Suspect]
     Indication: DIABETIC NEUROPATHY
     Dosage: 100 MG (50 MG, 2 IN 1 D), ORAL
     Route: 048
     Dates: start: 20060904
  2. INSULIN [Concomitant]
  3. COZAAR [Concomitant]
  4. ACTOS [Concomitant]
  5. LASIX [Concomitant]
  6. BACTRIM [Concomitant]
  7. TRICOR [Concomitant]
  8. MENTAX (BUTENAFINE) [Concomitant]

REACTIONS (1)
  - BLOOD GLUCOSE INCREASED [None]
